FAERS Safety Report 10580764 (Version 1)
Quarter: 2014Q4

REPORT INFORMATION
  Report Type: Spontaneous
  Country: US (occurrence: None)
  Receive Date: 20141112
  Receipt Date: 20141112
  Transmission Date: 20150529
  Serious: Yes (Life-Threatening, Disabling, Other)
  Sender: FDA-Public Use
  Company Number: None

PATIENT
  Age: 51 Year
  Sex: Female
  Weight: 115.21 kg

DRUGS (13)
  1. VALSARTAN. [Concomitant]
     Active Substance: VALSARTAN
  2. POTASSIUM [Concomitant]
     Active Substance: POTASSIUM
  3. FUROSEMIDE. [Concomitant]
     Active Substance: FUROSEMIDE
  4. BENZTROPINE [Concomitant]
     Active Substance: BENZTROPINE
  5. OMEPRAZOLE. [Concomitant]
     Active Substance: OMEPRAZOLE
  6. ATENOLOL. [Concomitant]
     Active Substance: ATENOLOL
  7. CALCIUM + VIT-D [Concomitant]
  8. LORATADINE. [Concomitant]
     Active Substance: LORATADINE
  9. LATUDA [Suspect]
     Active Substance: LURASIDONE HYDROCHLORIDE
     Indication: BIPOLAR DISORDER
     Dosage: 40 MG 1 PILL ONCE IN THE EVENING BY MOUTH
     Route: 048
     Dates: start: 20140502, end: 20140916
  10. ALBUTEROL. [Concomitant]
     Active Substance: ALBUTEROL
  11. MULTIVITAMIN [Concomitant]
     Active Substance: VITAMINS
  12. NAPROXEN. [Concomitant]
     Active Substance: NAPROXEN
  13. MELATONIN [Concomitant]
     Active Substance: MELATONIN

REACTIONS (29)
  - Unevaluable event [None]
  - Chills [None]
  - Neck pain [None]
  - Myalgia [None]
  - Asthenia [None]
  - Muscle twitching [None]
  - Dyskinesia [None]
  - Ocular icterus [None]
  - Diarrhoea [None]
  - Pyrexia [None]
  - Rash [None]
  - Headache [None]
  - Pain in extremity [None]
  - Stress [None]
  - Breast pain [None]
  - Pain [None]
  - Nausea [None]
  - Musculoskeletal pain [None]
  - Thirst [None]
  - Depression [None]
  - Musculoskeletal stiffness [None]
  - Oropharyngeal pain [None]
  - Vomiting [None]
  - Swelling [None]
  - Asthma [None]
  - Vision blurred [None]
  - Fatigue [None]
  - Skin discolouration [None]
  - Dizziness [None]

NARRATIVE: CASE EVENT DATE: 20140716
